FAERS Safety Report 14494641 (Version 2)
Quarter: 2018Q2

REPORT INFORMATION
  Report Type: Report from Study
  Country: DE (occurrence: DE)
  Receive Date: 20180206
  Receipt Date: 20180503
  Transmission Date: 20180711
  Serious: Yes (Death, Hospitalization, Other)
  Sender: FDA-Public Use
  Company Number: DE-TEVA-2018-DE-854087

PATIENT
  Age: 52 Year
  Sex: Female
  Weight: 66 kg

DRUGS (31)
  1. CALCIUM FOLINATE [Suspect]
     Active Substance: LEUCOVORIN CALCIUM
     Route: 042
     Dates: start: 20150608, end: 20150608
  2. OXALIPLATIN. [Suspect]
     Active Substance: OXALIPLATIN
     Indication: COLORECTAL CANCER
     Dosage: DAILY DOSE: UNKNOWN
     Route: 065
     Dates: start: 20150814, end: 20150925
  3. AVASTIN [Suspect]
     Active Substance: BEVACIZUMAB
     Dosage: 230 MILLIGRAM DAILY;
     Route: 042
     Dates: start: 20160908
  4. AVASTIN [Suspect]
     Active Substance: BEVACIZUMAB
     Dosage: 280 MILLIGRAM DAILY;
     Route: 042
     Dates: start: 20160107
  5. IRINOTECAN HCL [Suspect]
     Active Substance: IRINOTECAN HYDROCHLORIDE
     Indication: COLORECTAL CANCER
     Dosage: PEGYLATED LIPOSOMAL IRINOTECAN
     Route: 042
     Dates: start: 20160808, end: 20160906
  6. GRANOCYTE [Concomitant]
     Active Substance: LENOGRASTIM
     Dosage: 34 MU DAILY;
     Route: 058
     Dates: start: 20150615, end: 20150810
  7. CALCIUM FOLINATE [Suspect]
     Active Substance: LEUCOVORIN CALCIUM
     Route: 042
     Dates: start: 20150813, end: 20151008
  8. FLUOROURACIL. [Suspect]
     Active Substance: FLUOROURACIL
     Dosage: 600 MILLIGRAM DAILY;
     Route: 040
     Dates: start: 20151126, end: 20151126
  9. CLEXANE [Concomitant]
     Active Substance: ENOXAPARIN SODIUM
     Indication: THROMBOSIS PROPHYLAXIS
     Dosage: 40 MILLIGRAM DAILY;
     Route: 058
     Dates: start: 20150427
  10. OXALIPLATIN. [Suspect]
     Active Substance: OXALIPLATIN
     Route: 042
     Dates: start: 20150428, end: 20150609
  11. IRINOTECAN HCL [Suspect]
     Active Substance: IRINOTECAN HYDROCHLORIDE
     Dosage: 210 MILLIGRAM DAILY;
     Route: 042
     Dates: start: 20150813, end: 20151008
  12. IRINOTECAN HCL [Suspect]
     Active Substance: IRINOTECAN HYDROCHLORIDE
     Route: 042
     Dates: end: 20150630
  13. CALCIUM FOLINATE [Suspect]
     Active Substance: LEUCOVORIN CALCIUM
     Route: 042
     Dates: start: 20160908, end: 20160908
  14. FLUOROURACIL. [Suspect]
     Active Substance: FLUOROURACIL
     Route: 042
     Dates: start: 20150428, end: 20150430
  15. IRINOTECAN HCL [Suspect]
     Active Substance: IRINOTECAN HYDROCHLORIDE
     Indication: OFF LABEL USE
     Dosage: 220 MILLIGRAM DAILY; PEGYLATED LIPOSOMAL IRINOTECAN
     Route: 042
     Dates: start: 20150630
  16. IRINOTECAN HCL [Suspect]
     Active Substance: IRINOTECAN HYDROCHLORIDE
     Dosage: 270 MILLIGRAM DAILY; PEGYLATED LIPOSOMAL IRINOTECAN
     Route: 042
     Dates: start: 20150608, end: 20150608
  17. IRINOTECAN HCL [Suspect]
     Active Substance: IRINOTECAN HYDROCHLORIDE
     Dosage: 222 MILLIGRAM DAILY; PEGYLATED LIPOSOMAL IRINOTECAN
     Route: 042
     Dates: start: 20150713, end: 20150730
  18. CALCIUM FOLINATE [Suspect]
     Active Substance: LEUCOVORIN CALCIUM
     Indication: COLORECTAL CANCER
     Route: 042
     Dates: start: 20151210, end: 20160121
  19. CALCIUM FOLINATE [Suspect]
     Active Substance: LEUCOVORIN CALCIUM
     Route: 042
     Dates: start: 20150626, end: 20150730
  20. OXALIPLATIN. [Suspect]
     Active Substance: OXALIPLATIN
     Route: 042
     Dates: start: 20150627, end: 20150731
  21. FLUOROURACIL. [Suspect]
     Active Substance: FLUOROURACIL
     Indication: COLORECTAL CANCER
     Route: 042
     Dates: start: 20160908, end: 20160909
  22. AVASTIN [Suspect]
     Active Substance: BEVACIZUMAB
     Dosage: 230 MILLIGRAM DAILY;
     Route: 042
     Dates: start: 20160630
  23. FLUOROURACIL. [Suspect]
     Active Substance: FLUOROURACIL
     Dosage: 625 MILLIGRAM DAILY;
     Route: 040
     Dates: start: 20160428, end: 20160428
  24. IRINOTECAN HCL [Suspect]
     Active Substance: IRINOTECAN HYDROCHLORIDE
     Dosage: 275 MILLIGRAM DAILY; PEGYLATED LIPOSOMAL IRINOTECAN
     Route: 042
     Dates: start: 20150428, end: 20150526
  25. CALCIUM FOLINATE [Suspect]
     Active Substance: LEUCOVORIN CALCIUM
     Dosage: DOSAGES BETWEEN 255 MG AND 645 MG
     Route: 042
     Dates: end: 20160630
  26. CALCIUM FOLINATE [Suspect]
     Active Substance: LEUCOVORIN CALCIUM
     Route: 042
     Dates: start: 20151126, end: 20151126
  27. IRINOTECAN HCL [Suspect]
     Active Substance: IRINOTECAN HYDROCHLORIDE
     Route: 042
     Dates: start: 20160908, end: 20160908
  28. GRANOCYTE [Concomitant]
     Active Substance: LENOGRASTIM
     Indication: NEUTROPENIA
     Route: 065
     Dates: start: 20150810
  29. CALCIUM FOLINATE [Suspect]
     Active Substance: LEUCOVORIN CALCIUM
     Route: 042
     Dates: start: 20150428, end: 20150526
  30. AVASTIN [Suspect]
     Active Substance: BEVACIZUMAB
     Indication: COLORECTAL CANCER
     Dosage: 330 MILLIGRAM DAILY;
     Route: 042
     Dates: start: 20150428
  31. IRINOTECAN HCL [Suspect]
     Active Substance: IRINOTECAN HYDROCHLORIDE
     Dosage: 220 MILLIGRAM DAILY; PEGYLATED LIPOSOMAL IRINOTECAN
     Route: 042
     Dates: start: 20150626, end: 20150626

REACTIONS (11)
  - Mucosal inflammation [Recovered/Resolved]
  - Inappropriate schedule of drug administration [Unknown]
  - Bladder tamponade [Unknown]
  - Metastases to meninges [Unknown]
  - Cystitis haemorrhagic [Recovering/Resolving]
  - Vomiting [Recovered/Resolved]
  - Off label use [Unknown]
  - Disease recurrence [Unknown]
  - Proteinuria [Recovered/Resolved]
  - Metastases to central nervous system [Fatal]
  - Cystitis radiation [Recovering/Resolving]

NARRATIVE: CASE EVENT DATE: 20160107
